FAERS Safety Report 13565582 (Version 1)
Quarter: 2017Q2

REPORT INFORMATION
  Report Type: Spontaneous
  Country: US (occurrence: US)
  Receive Date: 20170519
  Receipt Date: 20170519
  Transmission Date: 20170830
  Serious: No
  Sender: FDA-Public Use
  Company Number: US-PFM-2017-02643

PATIENT
  Age: 2 Month
  Sex: Male
  Weight: 3.4 kg

DRUGS (1)
  1. HEMANGEOL [Suspect]
     Active Substance: PROPRANOLOL HYDROCHLORIDE
     Indication: INFANTILE HAEMANGIOMA
     Dosage: 0.6 ML, TID (3/DAY)
     Route: 048
     Dates: start: 20170330

REACTIONS (1)
  - Agitation [Unknown]
